FAERS Safety Report 5171938-5 (Version None)
Quarter: 2006Q4

REPORT INFORMATION
  Report Type: 
  Country: None (occurrence: None)
  Receive Date: 20061205
  Receipt Date: 20061121
  Transmission Date: 20070319
  Serious: Yes (Hospitalization, Other)
  Sender: FDA-Public Use
  Company Number: 2006-03010

PATIENT
  Age: 72 Year
  Sex: Female

DRUGS (2)
  1. VELCADE [Suspect]
     Indication: MULTIPLE MYELOMA
  2. REVLIMID [Suspect]
     Indication: MULTIPLE MYELOMA
     Dosage: 25.00 MG, ORAL
     Route: 048
     Dates: start: 20060901

REACTIONS (10)
  - ARRHYTHMIA [None]
  - ASTHENIA [None]
  - BLOOD POTASSIUM DECREASED [None]
  - DECREASED APPETITE [None]
  - DIARRHOEA [None]
  - FALL [None]
  - HEADACHE [None]
  - NEUROPATHY [None]
  - PAIN [None]
  - WEIGHT DECREASED [None]
